FAERS Safety Report 8792059 (Version 2)
Quarter: 2012Q4

REPORT INFORMATION
  Report Type: Report from Study
  Country: US (occurrence: US)
  Receive Date: 20120918
  Receipt Date: 20121016
  Transmission Date: 20130627
  Serious: No
  Sender: FDA-Public Use
  Company Number: US-VERTEX PHARMACEUTICAL INC.-AE-2012-011876

PATIENT
  Age: 51 Year
  Sex: Female
  Weight: 70 kg

DRUGS (9)
  1. VX-950 [Suspect]
     Indication: HEPATITIS C
     Dosage: 750 mg, tid
     Route: 048
     Dates: start: 20120801, end: 20121001
  2. PEGASYS [Concomitant]
     Indication: HEPATITIS C
     Dosage: 180 ?g, UNK
     Route: 058
     Dates: start: 20120801, end: 20121001
  3. RIBAVIRIN [Concomitant]
     Dosage: 400 mg am, 600 mg pm
     Route: 048
     Dates: start: 20120801, end: 20121001
  4. CLONAZEPAM [Concomitant]
     Route: 048
  5. AMLODIPINE [Concomitant]
     Route: 048
  6. AMITRIPTYLIN [Concomitant]
     Route: 048
  7. PRILOSEC [Concomitant]
     Route: 048
  8. IBUPROFEN [Concomitant]
     Route: 048
  9. NAPROSYN [Concomitant]
     Route: 048

REACTIONS (12)
  - Palpitations [Unknown]
  - Dyspnoea [Unknown]
  - Contusion [Unknown]
  - Weight decreased [Not Recovered/Not Resolved]
  - Headache [Not Recovered/Not Resolved]
  - Muscle spasms [Not Recovered/Not Resolved]
  - Pain [Not Recovered/Not Resolved]
  - Vision blurred [Not Recovered/Not Resolved]
  - Abdominal distension [Not Recovered/Not Resolved]
  - Feeling abnormal [Not Recovered/Not Resolved]
  - Fatigue [Not Recovered/Not Resolved]
  - Nausea [Not Recovered/Not Resolved]
